FAERS Safety Report 9508708 (Version 1)
Quarter: 2013Q1

REPORT INFORMATION
  Report Type: Spontaneous
  Country: US (occurrence: None)
  Receive Date: 20130305
  Receipt Date: 20130305
  Transmission Date: 20140127
  Serious: Yes (Hospitalization, Other)
  Sender: FDA-Public Use
  Company Number: 163-21880-1208174

PATIENT
  Age: 76 Year
  Sex: Female
  Weight: 61.24 kg

DRUGS (6)
  1. REVLIMID (LENALIDOMIDE) (15 MILLIGRAM, CAPSULES) [Suspect]
     Indication: PLASMA CELL MYELOMA
     Dosage: 1 IN 1 D
     Route: 048
     Dates: start: 20110817
  2. ASPIRIN [Concomitant]
  3. DEXAMETHASONE [Concomitant]
  4. PROZAC [Concomitant]
  5. STOOL SOFTENER [Concomitant]
  6. SYNTHROID [Concomitant]

REACTIONS (10)
  - Gait disturbance [None]
  - Full blood count decreased [None]
  - Hypotension [None]
  - Dehydration [None]
  - Fatigue [None]
  - Loss of consciousness [None]
  - Aphonia [None]
  - Constipation [None]
  - White blood cell count decreased [None]
  - Diarrhoea [None]
